FAERS Safety Report 5624871-6 (Version None)
Quarter: 2008Q1

REPORT INFORMATION
  Report Type: 
  Country: None (occurrence: None)
  Receive Date: 20080213
  Receipt Date: 20080204
  Transmission Date: 20080703
  Serious: Yes (Death)
  Sender: FDA-Public Use
  Company Number: DE-ROCHE-545524

PATIENT
  Age: 59 Year
  Sex: Male

DRUGS (53)
  1. TORSEMIDE [Suspect]
     Dosage: FREQUENCY REPORTED AS 1-1-0 1-1/2-0
     Route: 048
     Dates: start: 20041107, end: 20041217
  2. TORSEMIDE [Suspect]
     Route: 048
     Dates: start: 20040106, end: 20040107
  3. PHENPROCOUMON [Suspect]
     Indication: CARDIAC OPERATION
     Route: 048
     Dates: start: 20041125, end: 20041228
  4. PHENPROCOUMON [Suspect]
     Route: 048
     Dates: start: 20050101, end: 20050106
  5. PHYTOMENADIONE [Suspect]
     Dosage: SINGLE DOSE.
     Route: 042
     Dates: start: 20041231, end: 20041231
  6. CLEMASTIN [Suspect]
     Indication: PRURITUS
     Dosage: DOSING FREQUENCY: 1-0-1 1-1-1 0-1-1
     Route: 048
     Dates: start: 20041215, end: 20041222
  7. CLEMASTIN [Suspect]
     Route: 048
     Dates: start: 20041227, end: 20041229
  8. SODIUM CHLORIDE [Suspect]
     Dosage: DRUG NAME: NACL INFLSG (250ML, 500 ML, 1000ML).
     Route: 042
     Dates: start: 20041125, end: 20041220
  9. SODIUM CHLORIDE [Suspect]
     Route: 042
     Dates: start: 20041227, end: 20041229
  10. METOPROLOL TARTRATE [Suspect]
     Dosage: DRUG NAME: BELOC-ZOK FORTE
     Route: 048
     Dates: start: 20041107, end: 20050107
  11. DECORTIN H [Suspect]
     Indication: NEPHROTIC SYNDROME
     Dosage: FREQUENCY: 1/2-0-0; 3-0-1; 5/2-0-3/2; 1-0-1/2 (FOR 20 MG); 3-0-1; 3-0-0 (FOR 10 MG).
     Route: 048
     Dates: start: 20041217, end: 20041223
  12. DECORTIN H [Suspect]
     Dosage: STRENGTH REPORTED AS 20 MG AND 10 MG.
     Route: 048
     Dates: start: 20050104, end: 20050107
  13. TAVOR [Suspect]
     Indication: SLEEP DISORDER THERAPY
     Dosage: DOSING REGIMEN: 0-0-1; 1-1/2-0
     Route: 048
     Dates: start: 20041218, end: 20041227
  14. CIPRO [Suspect]
     Indication: INFECTION
     Dosage: DOSING REGIMEN: 1-0-0; 1/2-0-1/2
     Route: 048
     Dates: start: 20041220, end: 20041228
  15. LASIX [Suspect]
     Indication: OEDEMA
     Dosage: DRUG NAME: LASIX INJLSG
     Route: 042
     Dates: start: 20041220, end: 20050102
  16. BENURON [Suspect]
     Dosage: SINGLE ADMINISTRATION.
     Route: 065
     Dates: start: 20041226, end: 20041226
  17. IMODIUM [Suspect]
     Indication: DIARRHOEA
     Dosage: SINGLE ADMINISTRATION.
     Route: 048
     Dates: start: 20041227, end: 20041227
  18. DECORTIN [Suspect]
     Indication: NEPHROTIC SYNDROME
     Route: 048
     Dates: start: 20041227, end: 20050103
  19. CLEXANE [Suspect]
     Indication: THROMBOSIS PROPHYLAXIS
     Route: 058
     Dates: start: 20041227, end: 20041228
  20. CLEXANE [Suspect]
     Route: 058
     Dates: start: 20041231, end: 20050106
  21. CLONT [Suspect]
     Indication: DIARRHOEA
     Route: 048
     Dates: start: 20041228, end: 20041229
  22. CA++ [Suspect]
     Dosage: SINGLE ADMINISTRATION.
     Route: 042
     Dates: start: 20041229, end: 20041229
  23. NEXIUM [Suspect]
     Indication: PROPHYLAXIS
     Route: 048
     Dates: start: 20041230, end: 20050104
  24. NAHCO3 [Suspect]
     Dosage: SINGLE ADMINISTRATION DRUG NAME: NABIC.
     Route: 042
     Dates: start: 20041231, end: 20041231
  25. ALBUMIN (HUMAN) [Suspect]
     Route: 042
     Dates: start: 20041231, end: 20041231
  26. ERYTHROPOIETIN HUMAN [Suspect]
     Dosage: DRUG NAME: ERYTHROZYTEN
     Route: 042
     Dates: start: 20041231, end: 20041231
  27. RINGER'S INJECTION [Suspect]
     Dosage: DRUG NAME: RINGERLOSUNG. STRENGTH: 2X500 ML - 2 X 1000 ML.
     Route: 042
     Dates: start: 20050101, end: 20050104
  28. POTASSIUM CHLORIDE [Suspect]
     Dosage: SINGLE ADMINISTRATION
     Route: 042
     Dates: start: 20040102, end: 20040102
  29. KALIUM [Suspect]
     Route: 048
     Dates: start: 20050103, end: 20050105
  30. PASPERTIN [Suspect]
     Indication: GASTRIC DISORDER
     Dosage: STRENGTH: 20 TR.
     Route: 048
     Dates: start: 20050107, end: 20050107
  31. FUROSEMIDE [Concomitant]
     Route: 048
     Dates: start: 20050108, end: 20050108
  32. ALDACTONE [Concomitant]
     Route: 048
     Dates: start: 20041107, end: 20041217
  33. VANCOMYCIN [Concomitant]
     Indication: ENDOCARDITIS
     Route: 042
     Dates: start: 20041114, end: 20041120
  34. FENISTIL [Concomitant]
     Indication: PRURITUS
     Dosage: DRUG NAME: FENISTIL GEL.
     Route: 061
     Dates: start: 20041215, end: 20041222
  35. ROCEPHIN [Concomitant]
     Indication: ENDOCARDITIS
     Route: 042
     Dates: start: 20041218, end: 20041220
  36. PARACODIN BITARTRATE TAB [Concomitant]
     Route: 048
     Dates: start: 20041218, end: 20041222
  37. BEPANTHEN [Concomitant]
     Indication: THERAPEUTIC SKIN CARE TOPICAL
     Route: 061
     Dates: start: 20071220, end: 20071221
  38. PANTOZOL [Concomitant]
     Indication: PROPHYLAXIS
     Route: 048
     Dates: start: 20041221, end: 20041221
  39. TAVEGIL [Concomitant]
     Indication: PRURITUS
     Dosage: TAVEGIL GEL
     Route: 061
     Dates: start: 20071222, end: 20071222
  40. GLUCOSE [Concomitant]
     Dosage: STRENGTH: 1000 ML - 500 ML.
     Route: 042
     Dates: start: 20041227, end: 20041227
  41. MUCOSOLVAN [Concomitant]
     Indication: SECRETION DISCHARGE
     Route: 042
     Dates: start: 20050112, end: 20050112
  42. TAVEGIL [Concomitant]
     Route: 042
     Dates: start: 20050112, end: 20050113
  43. CORDAREX [Concomitant]
     Indication: CARDIAC DISORDER
     Dosage: ROUTE: ORAL; STRENGTH: 200 MG.
     Dates: start: 20050112, end: 20050113
  44. CORDAREX [Concomitant]
     Dosage: ROUTE: INTRAVENOUS; FORM: AMPULE.
     Dates: start: 20041212, end: 20041213
  45. MERONEM [Concomitant]
     Dates: start: 20050112, end: 20050113
  46. NOREPINEPHRINE BITARTRATE [Concomitant]
     Indication: BLOOD PRESSURE MANAGEMENT
     Dates: start: 20050112, end: 20050113
  47. BELOC [Concomitant]
     Route: 042
     Dates: start: 20050112, end: 20050113
  48. DECORTIN [Concomitant]
     Route: 042
     Dates: start: 20050112, end: 20050113
  49. DORMICUM [Concomitant]
     Indication: RESTLESSNESS
     Route: 042
     Dates: start: 20050112, end: 20050113
  50. NEXIUM [Concomitant]
     Route: 042
     Dates: start: 20050112, end: 20050113
  51. FENTANYL [Concomitant]
     Indication: RESTLESSNESS
     Route: 042
     Dates: start: 20050112, end: 20050113
  52. FRESUBIN [Concomitant]
     Dosage: STRENGTH: 500 ML - 1000 ML.
     Route: 048
     Dates: start: 20050112, end: 20050113
  53. NOVODIGAL [Concomitant]
     Route: 048
     Dates: start: 20050113, end: 20050113

REACTIONS (2)
  - STEVENS-JOHNSON SYNDROME [None]
  - TOXIC EPIDERMAL NECROLYSIS [None]
